FAERS Safety Report 7435122-4 (Version None)
Quarter: 2011Q2

REPORT INFORMATION
  Report Type: 
  Country: None (occurrence: None)
  Receive Date: 20110425
  Receipt Date: 20110411
  Transmission Date: 20111010
  Serious: Yes (Hospitalization)
  Sender: FDA-Public Use
  Company Number: PHHY2011NO31429

PATIENT
  Sex: Male

DRUGS (10)
  1. ORFIRIL [Concomitant]
     Dosage: 1050 MG, VESPER
  2. SIMVASTATIN [Concomitant]
     Dosage: 40 MG,
  3. CETIRIZINE HCL [Concomitant]
     Dosage: 10 MG,
  4. LEPONEX [Suspect]
  5. SEROQUEL [Concomitant]
     Dosage: 200 MG VESPER
  6. LEPONEX [Suspect]
     Indication: AGITATION
     Dosage: 50 MG MORNING AND 75 MG EVENING
  7. PENICILLIN V POTASSIUM [Concomitant]
     Dosage: 660 MG,
  8. LEPONEX [Suspect]
     Indication: ANXIETY
     Dosage: 25 MG INCREASE EVERY SECOND DAY
  9. LOSARTAN POTASSIUM AND HYDROCHLOROTHIAZIDE [Concomitant]
  10. LEPONEX [Suspect]
     Indication: SUSPICIOUSNESS
     Dosage: 75 MG MORNING AND 100 MG EVENING
     Dates: start: 20080812, end: 20080816

REACTIONS (25)
  - PNEUMONIA [None]
  - NAUSEA [None]
  - TACHYCARDIA [None]
  - RESPIRATORY RATE INCREASED [None]
  - BLOOD PRESSURE DECREASED [None]
  - CHRONIC OBSTRUCTIVE PULMONARY DISEASE [None]
  - DILATATION VENTRICULAR [None]
  - C-REACTIVE PROTEIN INCREASED [None]
  - OXYGEN SATURATION DECREASED [None]
  - RESPIRATORY DISORDER [None]
  - HEART RATE DECREASED [None]
  - CONFUSIONAL STATE [None]
  - LISTLESS [None]
  - ATRIAL FIBRILLATION [None]
  - SEPSIS [None]
  - BUNDLE BRANCH BLOCK RIGHT [None]
  - AMNESIA [None]
  - CARDIAC FAILURE [None]
  - GENERAL PHYSICAL HEALTH DETERIORATION [None]
  - FATIGUE [None]
  - PYREXIA [None]
  - MUSCULAR WEAKNESS [None]
  - SEDATION [None]
  - EATING DISORDER [None]
  - WHEEZING [None]
